FAERS Safety Report 6877470-2 (Version None)
Quarter: 2010Q2

REPORT INFORMATION
  Report Type: 
  Country: None (occurrence: None)
  Receive Date: 20100616
  Receipt Date: 20100512
  Transmission Date: 20101027
  Serious: No
  Sender: FDA-Public Use
  Company Number: DSA_43141_2010

PATIENT
  Sex: Female

DRUGS (1)
  1. XENAZINE [Suspect]
     Indication: TARDIVE DYSKINESIA
     Dosage: 25 MG QD ORAL
     Route: 048
     Dates: start: 20100421, end: 20100511

REACTIONS (4)
  - INSOMNIA [None]
  - MALAISE [None]
  - NECK PAIN [None]
  - RESTLESSNESS [None]
